FAERS Safety Report 9204388 (Version 1)
Quarter: 2013Q2

REPORT INFORMATION
  Report Type: Spontaneous
  Country: US (occurrence: None)
  Receive Date: 20130401
  Receipt Date: 20130401
  Transmission Date: 20140414
  Serious: Yes (Other)
  Sender: FDA-Public Use
  Company Number: None

PATIENT
  Sex: Female
  Weight: 100 kg

DRUGS (3)
  1. AVEENO [Suspect]
     Dosage: 1, 1X, TOPICAL
     Route: 061
     Dates: end: 20130310
  2. UNSPECIFIED BLOOD PRESSURE PILL [Concomitant]
  3. ESTROGEN [Concomitant]

REACTIONS (1)
  - Hypersensitivity [None]
